FAERS Safety Report 9372804 (Version 1)
Quarter: 2013Q2

REPORT INFORMATION
  Report Type: Report from Study
  Country: US (occurrence: US)
  Receive Date: 20130627
  Receipt Date: 20130627
  Transmission Date: 20140414
  Serious: Yes (Death)
  Sender: FDA-Public Use
  Company Number: US-MYLANLABS-2013S1009321

PATIENT
  Age: 46 Year
  Sex: Female

DRUGS (4)
  1. CLOZAPINE TABLETS [Suspect]
     Indication: SCHIZOPHRENIA
     Route: 048
     Dates: start: 2005, end: 201304
  2. NYSTATIN [Concomitant]
     Route: 048
  3. BUPROPION [Concomitant]
     Route: 048
  4. RISPERIDONE [Concomitant]
     Route: 048

REACTIONS (1)
  - Myocardial infarction [Fatal]
